FAERS Safety Report 8872080 (Version 3)
Quarter: 2012Q4

REPORT INFORMATION
  Report Type: Report from Study
  Country: US (occurrence: US)
  Receive Date: 20121030
  Receipt Date: 20121207
  Transmission Date: 20130627
  Serious: Yes (Other)
  Sender: FDA-Public Use
  Company Number: US-ROCHE-1082704

PATIENT
  Sex: Male

DRUGS (5)
  1. PEG-INTERFERON ALFA 2A [Suspect]
     Indication: CHRONIC HEPATITIS C
     Route: 058
     Dates: start: 20120623
  2. PEG-INTERFERON ALFA 2A [Suspect]
     Route: 065
  3. RIBAVIRIN [Suspect]
     Indication: CHRONIC HEPATITIS C
     Dosage: divided doses, 400/400
     Route: 048
  4. HYDROCODONE BITARTRATE [Concomitant]
     Dosage: 1DF-5mg; dose increased
     Route: 065
  5. LITHIUM [Concomitant]

REACTIONS (23)
  - Pneumonia [Recovering/Resolving]
  - Influenza like illness [Unknown]
  - Chills [Unknown]
  - Tremor [Unknown]
  - Myalgia [Unknown]
  - Back pain [Unknown]
  - Skin discolouration [Recovered/Resolved]
  - Muscle spasms [Recovered/Resolved]
  - White blood cell count decreased [Not Recovered/Not Resolved]
  - Pyrexia [Not Recovered/Not Resolved]
  - Insomnia [Not Recovered/Not Resolved]
  - Laceration [Unknown]
  - Vomiting [Unknown]
  - Oral pain [Unknown]
  - Haemorrhoidal haemorrhage [Unknown]
  - Oral mucosal blistering [Unknown]
  - Mass [Unknown]
  - Glossodynia [Unknown]
  - Gingival swelling [Unknown]
  - Dyspepsia [Unknown]
  - Oral candidiasis [Unknown]
  - White blood cell count decreased [Recovered/Resolved]
  - Vomiting [Unknown]
